FAERS Safety Report 10465797 (Version 3)
Quarter: 2014Q4

REPORT INFORMATION
  Report Type: Report from Study
  Country: BR (occurrence: BR)
  Receive Date: 20140921
  Receipt Date: 20141217
  Transmission Date: 20150528
  Serious: Yes (Death, Other)
  Sender: FDA-Public Use
  Company Number: PHHY2013BR103915

PATIENT
  Age: 65 Year
  Sex: Female
  Weight: 40 kg

DRUGS (1)
  1. ACLASTA [Suspect]
     Active Substance: ZOLEDRONIC ACID
     Indication: OSTEOPOROSIS
     Dosage: 5 MG, ONE A YEAR
     Route: 042
     Dates: start: 20130912

REACTIONS (11)
  - Lung disorder [Unknown]
  - Abasia [Unknown]
  - Decreased appetite [Recovering/Resolving]
  - Death [Fatal]
  - Haematoma [Unknown]
  - Respiratory failure [Unknown]
  - Chills [Recovering/Resolving]
  - Renal failure [Unknown]
  - Pain [Recovering/Resolving]
  - Peripheral swelling [Unknown]
  - Haemorrhage [Unknown]

NARRATIVE: CASE EVENT DATE: 20140908
